FAERS Safety Report 7095161-2 (Version None)
Quarter: 2010Q4

REPORT INFORMATION
  Report Type: 
  Country: None (occurrence: None)
  Receive Date: 20101109
  Receipt Date: 20101109
  Transmission Date: 20110411
  Serious: Yes (Other)
  Sender: FDA-Public Use
  Company Number: None

PATIENT
  Age: 44 Year
  Sex: Female
  Weight: 113.3993 kg

DRUGS (3)
  1. SINGULAIR [Suspect]
     Indication: ASTHMA
     Dosage: 10MG 1/DAY PO
     Route: 048
     Dates: start: 20101010, end: 20101024
  2. SINGULAIR [Suspect]
     Indication: PULMONARY CONGESTION
     Dosage: 10MG 1/DAY PO
     Route: 048
     Dates: start: 20101010, end: 20101024
  3. SINGULAIR [Suspect]
     Indication: WHEEZING
     Dosage: 10MG 1/DAY PO
     Route: 048
     Dates: start: 20101010, end: 20101024

REACTIONS (5)
  - BONE PAIN [None]
  - HYPERSOMNIA [None]
  - INSOMNIA [None]
  - MUSCLE SPASMS [None]
  - PAIN IN EXTREMITY [None]
